FAERS Safety Report 13392788 (Version 1)
Quarter: 2017Q1

REPORT INFORMATION
  Report Type: Report from Study
  Country: BR (occurrence: BR)
  Receive Date: 20170331
  Receipt Date: 20170331
  Transmission Date: 20170429
  Serious: Yes (Other)
  Sender: FDA-Public Use
  Company Number: BR-JNJFOC-20161107204

PATIENT
  Sex: Female
  Weight: 58.5 kg

DRUGS (1)
  1. SIMPONI [Suspect]
     Active Substance: GOLIMUMAB
     Indication: RHEUMATOID ARTHRITIS
     Route: 058
     Dates: start: 20161006, end: 20161219

REACTIONS (3)
  - Tuberculosis [Unknown]
  - Drug dose omission [Recovered/Resolved]
  - Incorrect product storage [Unknown]
